FAERS Safety Report 8164194-7 (Version None)
Quarter: 2012Q1

REPORT INFORMATION
  Report Type: 
  Country: None (occurrence: None)
  Receive Date: 20120224
  Receipt Date: 20120216
  Transmission Date: 20120608
  Serious: Yes (Hospitalization)
  Sender: FDA-Public Use
  Company Number: US-US-EMD SERONO, INC.-7113498

PATIENT
  Sex: Female

DRUGS (4)
  1. VENTOLIN DS [Concomitant]
     Indication: ASTHMA
  2. REBIF [Suspect]
     Indication: MULTIPLE SCLEROSIS
     Route: 058
     Dates: start: 20100101
  3. REBIF [Suspect]
     Route: 058
     Dates: start: 20120201, end: 20120214
  4. MOTRIN [Concomitant]
     Indication: PREMEDICATION

REACTIONS (5)
  - VENTRICULAR EXTRASYSTOLES [None]
  - HEART RATE INCREASED [None]
  - CHEST DISCOMFORT [None]
  - RASH [None]
  - ASTHMA [None]
